FAERS Safety Report 8402420-7 (Version None)
Quarter: 2012Q2

REPORT INFORMATION
  Report Type: 
  Country: None (occurrence: None)
  Receive Date: 20120601
  Receipt Date: 20120523
  Transmission Date: 20120825
  Serious: Yes (Other)
  Sender: FDA-Public Use
  Company Number: US-VERTEX PHARMACEUTICALS INC.-AE-2012-007615

PATIENT
  Sex: Female
  Weight: 59.02 kg

DRUGS (6)
  1. INCIVEK [Suspect]
     Indication: HEPATITIS C
     Route: 048
     Dates: start: 20120301
  2. PEGASYS [Concomitant]
     Indication: HEPATITIS C
     Dates: start: 20120301
  3. OMEPRAZOLE [Concomitant]
  4. RIBAVIRIN [Concomitant]
     Dates: start: 20120501
  5. AMITIZA [Concomitant]
  6. RIBAVIRIN [Concomitant]
     Indication: HEPATITIS C
     Dates: start: 20120301

REACTIONS (3)
  - ANAEMIA [None]
  - FATIGUE [None]
  - LOSS OF CONSCIOUSNESS [None]
